FAERS Safety Report 5311806-9 (Version None)
Quarter: 2007Q2

REPORT INFORMATION
  Report Type: 
  Country: None (occurrence: None)
  Receive Date: 20070430
  Receipt Date: 20061013
  Transmission Date: 20071010
  Serious: No
  Sender: FDA-Public Use
  Company Number: 2004UW24463

PATIENT
  Age: 86 Year
  Sex: Male
  Weight: 73.9 kg

DRUGS (2)
  1. NEXIUM [Suspect]
     Route: 048
  2. GAVISCON [Concomitant]

REACTIONS (6)
  - ABDOMINAL PAIN UPPER [None]
  - DRUG INEFFECTIVE [None]
  - DYSGEUSIA [None]
  - HEADACHE [None]
  - LACRIMATION INCREASED [None]
  - PAIN IN EXTREMITY [None]
